FAERS Safety Report 10105799 (Version 2)
Quarter: 2014Q3

REPORT INFORMATION
  Report Type: Other
  Country: US (occurrence: US)
  Receive Date: 20140424
  Receipt Date: 20140731
  Transmission Date: 20150326
  Serious: Yes (Hospitalization, Other)
  Sender: FDA-Public Use
  Company Number: US-GSKPPD-2014GSK002187

PATIENT
  Age: 41 Year
  Sex: Male

DRUGS (17)
  1. LISINOPRIL. [Concomitant]
     Active Substance: LISINOPRIL
  2. ASPIRIN. [Concomitant]
     Active Substance: ASPIRIN
  3. ASPIRIN. [Concomitant]
     Active Substance: ASPIRIN
  4. LOTREL [Concomitant]
     Active Substance: AMLODIPINE BESYLATE\BENAZEPRIL HYDROCHLORIDE
     Dosage: 5/10 MG
  5. IMDUR [Concomitant]
     Active Substance: ISOSORBIDE MONONITRATE
  6. IMDUR [Concomitant]
     Active Substance: ISOSORBIDE MONONITRATE
  7. METOPROLOL [Concomitant]
     Active Substance: METOPROLOL
  8. NITROGLYCERIN. [Concomitant]
     Active Substance: NITROGLYCERIN
  9. AVANDIA [Suspect]
     Active Substance: ROSIGLITAZONE MALEATE
     Indication: DIABETES MELLITUS
     Route: 048
     Dates: start: 200007, end: 200206
  10. LASIX [Concomitant]
     Active Substance: FUROSEMIDE
  11. PLAVIX [Concomitant]
     Active Substance: CLOPIDOGREL BISULFATE
  12. NITROGLYCERIN. [Concomitant]
     Active Substance: NITROGLYCERIN
     Route: 060
  13. LASIX [Concomitant]
     Active Substance: FUROSEMIDE
  14. IMDUR [Concomitant]
     Active Substance: ISOSORBIDE MONONITRATE
  15. NITROGLYCERIN. [Concomitant]
     Active Substance: NITROGLYCERIN
  16. LASIX [Concomitant]
     Active Substance: FUROSEMIDE
  17. ASPIRIN. [Concomitant]
     Active Substance: ASPIRIN

REACTIONS (1)
  - Vascular graft [Recovered/Resolved]

NARRATIVE: CASE EVENT DATE: 20000718
